FAERS Safety Report 5238066-1 (Version None)
Quarter: 2007Q1

REPORT INFORMATION
  Report Type: 
  Country: None (occurrence: None)
  Receive Date: 20070215
  Receipt Date: 20070202
  Transmission Date: 20070707
  Serious: Yes (Other)
  Sender: FDA-Public Use
  Company Number: PHEH2007US01587

PATIENT
  Sex: Female

DRUGS (3)
  1. ZOMETA [Suspect]
  2. REVLIMID [Suspect]
     Indication: MULTIPLE MYELOMA
     Dosage: 5 MG EVERY OTHER DAY
     Dates: start: 20060316
  3. AREDIA [Suspect]

REACTIONS (1)
  - OSTEONECROSIS [None]
